FAERS Safety Report 7945394-5 (Version None)
Quarter: 2011Q4

REPORT INFORMATION
  Report Type: 
  Country: None (occurrence: None)
  Receive Date: 20111129
  Receipt Date: 20110808
  Transmission Date: 20120403
  Serious: No
  Sender: FDA-Public Use
  Company Number: US-GLAXOSMITHKLINE-A0940087A

PATIENT
  Sex: Female

DRUGS (4)
  1. LAMOTRIGINE [Concomitant]
  2. AMBIEN [Concomitant]
  3. URSODIOL [Concomitant]
  4. WELLBUTRIN SR [Suspect]
     Indication: BIPOLAR DISORDER
     Dosage: 150MG THREE TIMES PER DAY
     Route: 048
     Dates: start: 20050101, end: 20110804

REACTIONS (1)
  - PRURITUS [None]
